FAERS Safety Report 5256018-2 (Version None)
Quarter: 2007Q1

REPORT INFORMATION
  Report Type: 
  Country: None (occurrence: None)
  Receive Date: 20070306
  Receipt Date: 20070221
  Transmission Date: 20070707
  Serious: Yes (Hospitalization, Other)
  Sender: FDA-Public Use
  Company Number: PHHO2006GB20541

PATIENT
  Age: 67 Year
  Sex: Female

DRUGS (7)
  1. EXJADE [Suspect]
     Indication: BLOOD IRON INCREASED
     Dosage: 625 MG, QD
     Route: 048
     Dates: start: 20060516, end: 20060523
  2. EXJADE [Suspect]
     Dosage: UNK, NO TREATMENT
     Dates: start: 20060524, end: 20060612
  3. EXJADE [Suspect]
     Dosage: 125 MG, QD
     Route: 048
     Dates: start: 20060613, end: 20060627
  4. EXJADE [Suspect]
     Dosage: 250 MG, QD
     Route: 048
     Dates: start: 20060628, end: 20060813
  5. EXJADE [Suspect]
     Dosage: 500 MG, QD
     Route: 048
     Dates: start: 20060814, end: 20061201
  6. ANTIHISTAMINES [Concomitant]
  7. ACYCLOVIR [Concomitant]

REACTIONS (21)
  - ABDOMINAL DISTENSION [None]
  - ABDOMINAL MASS [None]
  - ABDOMINAL PAIN [None]
  - ABDOMINAL PAIN UPPER [None]
  - ASCITES [None]
  - BACK PAIN [None]
  - CHOLELITHIASIS [None]
  - DECREASED APPETITE [None]
  - FALL [None]
  - FATIGUE [None]
  - GASTRITIS [None]
  - HEPATOSPLENOMEGALY [None]
  - HYDRONEPHROSIS [None]
  - INFECTION [None]
  - MALAISE [None]
  - NAUSEA [None]
  - PALLOR [None]
  - RETROPERITONEAL HAEMORRHAGE [None]
  - SPLENIC INJURY [None]
  - VOMITING [None]
  - WEIGHT DECREASED [None]
